FAERS Safety Report 13855627 (Version 1)
Quarter: 2017Q3

REPORT INFORMATION
  Report Type: Spontaneous
  Country: US (occurrence: US)
  Receive Date: 20170810
  Receipt Date: 20170810
  Transmission Date: 20171127
  Serious: No
  Sender: FDA-Public Use
  Company Number: US-VIFOR (INTERNATIONAL) INC.-VIT-2017-05618

PATIENT
  Sex: Female

DRUGS (10)
  1. CLOPIDOGREL BISULFATE. [Concomitant]
     Active Substance: CLOPIDOGREL BISULFATE
  2. GABAPENTIN. [Concomitant]
     Active Substance: GABAPENTIN
  3. ASPIRIN LOW DOSE [Concomitant]
     Active Substance: ASPIRIN
  4. VELTASSA [Suspect]
     Active Substance: PATIROMER
     Indication: HYPERKALAEMIA
     Route: 048
     Dates: start: 20161112
  5. FUROSEMIDE. [Concomitant]
     Active Substance: FUROSEMIDE
  6. RENAGEL [Concomitant]
     Active Substance: SEVELAMER HYDROCHLORIDE
  7. LIPITOR [Concomitant]
     Active Substance: ATORVASTATIN CALCIUM
  8. CARVEDILOL. [Concomitant]
     Active Substance: CARVEDILOL
  9. HUMALOG [Concomitant]
     Active Substance: INSULIN LISPRO
  10. LANTUS [Concomitant]
     Active Substance: INSULIN GLARGINE

REACTIONS (1)
  - Blood potassium decreased [Unknown]
